FAERS Safety Report 20637115 (Version 1)
Quarter: 2022Q1

REPORT INFORMATION
  Report Type: Spontaneous
  Country: US (occurrence: US)
  Receive Date: 20220325
  Receipt Date: 20220325
  Transmission Date: 20220423
  Serious: No
  Sender: FDA-Public Use
  Company Number: US-BAYER-2022A042637

PATIENT
  Sex: Female
  Weight: 92.063 kg

DRUGS (11)
  1. MIRALAX [Suspect]
     Active Substance: POLYETHYLENE GLYCOL 3350
     Indication: Constipation
     Dosage: HALF DOSE
  2. LENVIMA [Concomitant]
     Active Substance: LENVATINIB
     Dosage: 10 MG, QD
     Route: 048
  3. TELMISARTAN [Concomitant]
     Active Substance: TELMISARTAN
     Dosage: HALF DOSE
  4. LANTUS [Concomitant]
     Active Substance: INSULIN GLARGINE
     Dosage: UNK
  5. KEYTRUDA [Concomitant]
     Active Substance: PEMBROLIZUMAB
     Dosage: UNK
  6. FASLODEX [Concomitant]
     Active Substance: FULVESTRANT
     Dosage: UNK
  7. OMEPRAZOLE [Concomitant]
     Active Substance: OMEPRAZOLE
     Dosage: UNK
  8. TUMS [Concomitant]
     Active Substance: CALCIUM CARBONATE
     Dosage: UNK
  9. CANNABIDIOL [Concomitant]
     Active Substance: CANNABIDIOL
     Indication: Insomnia
  10. SENSODYNE [SODIUM FLUORIDE] [Concomitant]
     Indication: Stomatitis
     Dosage: UNK
  11. SIMETHICONE (DIMETHICONE) [Concomitant]
     Active Substance: DIMETHICONE
     Indication: Abdominal distension

REACTIONS (9)
  - Diarrhoea [Unknown]
  - Eating disorder [Unknown]
  - Weight decreased [Unknown]
  - Gastrointestinal tract irritation [Unknown]
  - Blood pressure abnormal [Unknown]
  - Skin irritation [None]
  - Urine abnormality [Unknown]
  - Muscle spasms [Unknown]
  - Incorrect dose administered [None]
